FAERS Safety Report 15760727 (Version 3)
Quarter: 2019Q4

REPORT INFORMATION
  Report Type: Spontaneous
  Country: PR (occurrence: PR)
  Receive Date: 20181226
  Receipt Date: 20191120
  Transmission Date: 20200122
  Serious: No
  Sender: FDA-Public Use
  Company Number: PR-PFIZER INC-2018414720

PATIENT
  Age: 50 Year
  Sex: Female
  Weight: 68 kg

DRUGS (3)
  1. IBRANCE [Suspect]
     Active Substance: PALBOCICLIB
     Indication: BREAST CANCER FEMALE
     Dosage: 125 MG, CYCLIC (DAILY FOR 21 DAYS / 7 OFF)
     Route: 048
     Dates: start: 20180531
  2. IBRANCE [Suspect]
     Active Substance: PALBOCICLIB
     Dosage: 125 MG, DAILY
     Route: 048
     Dates: start: 20180531
  3. IBRANCE [Suspect]
     Active Substance: PALBOCICLIB
     Dosage: 125 MG, CYCLIC (1 CAPSULE DAILY FOR 21 DAYS AND 7 OFF)
     Route: 048
     Dates: start: 20180531

REACTIONS (5)
  - Extra dose administered [Unknown]
  - Decreased appetite [Unknown]
  - Hair texture abnormal [Unknown]
  - Nasal congestion [Unknown]
  - Dysuria [Unknown]

NARRATIVE: CASE EVENT DATE: 2018
